FAERS Safety Report 7318685-9 (Version None)
Quarter: 2011Q1

REPORT INFORMATION
  Report Type: 
  Country: None (occurrence: None)
  Receive Date: 20110228
  Receipt Date: 20110217
  Transmission Date: 20110831
  Serious: Yes (Other)
  Sender: FDA-Public Use
  Company Number: BR-AMGEN-BRASP2011009447

PATIENT
  Age: 59 Year
  Sex: Female
  Weight: 70 kg

DRUGS (15)
  1. METFORMIN [Concomitant]
     Indication: DIABETES MELLITUS
     Dosage: 1275 MG, 1X/DAY (ONE AND A HALF 850MG TABLET DAILY)
     Route: 048
     Dates: start: 20090101
  2. ANCORON [Concomitant]
     Indication: ARRHYTHMIA
     Dosage: 200MG, THREE TIMES A WEEK
     Route: 048
     Dates: start: 20100801
  3. CEBRALAT [Concomitant]
     Indication: PROPHYLAXIS
     Dosage: 100 MG, 1X/DAY
     Route: 048
     Dates: start: 20090101
  4. CALCIUM + VITAMIN D [Concomitant]
     Indication: OSTEOPOROSIS
     Dosage: UNKNOWN DOSE, ONCE DAILY
     Dates: start: 20090101
  5. ENDOFOLIN                          /00024201/ [Concomitant]
     Indication: PROPHYLAXIS
     Dosage: TWO 5MG TABLETS, WEEKLY
     Dates: start: 20080101
  6. PANTOPRAZOL                        /01263202/ [Concomitant]
     Indication: HYPERCHLORHYDRIA
     Dosage: 20 MG, 1X/DAY
     Route: 048
     Dates: start: 20080101
  7. NAPROXEN [Concomitant]
     Indication: RHEUMATOID ARTHRITIS
     Dosage: 250 MG, 1X/DAY
     Route: 048
     Dates: start: 20080101
  8. METOPROLOL TARTRATE [Concomitant]
     Indication: HYPERTENSION
     Dosage: 50 MG, 1X/DAY
     Route: 048
     Dates: start: 20100801
  9. EQUILID [Concomitant]
     Indication: DYSTHYMIC DISORDER
     Dosage: 50 MG, 1X/DAY
     Route: 048
     Dates: start: 20080101
  10. SIMVASTATIN [Concomitant]
     Indication: BLOOD CHOLESTEROL INCREASED
     Dosage: 40 MG, 1X/DAY
     Route: 048
     Dates: start: 20100801
  11. BURINAX [Concomitant]
     Indication: FLUID RETENTION
     Dosage: 1 MG, 1X/DAY
     Route: 048
     Dates: start: 20101001
  12. NATRILIX-SR [Concomitant]
     Indication: HYPERTENSION
     Dosage: 1.5 MG, 1X/DAY
     Route: 048
     Dates: start: 20100801
  13. METHOTREXATE [Concomitant]
     Indication: RHEUMATOID ARTHRITIS
     Dosage: 50 MG, WEEKLY
     Dates: start: 20080101
  14. ENBREL [Suspect]
     Indication: RHEUMATOID ARTHRITIS
     Dosage: 50 MG, 1X/WEEK
     Route: 058
     Dates: start: 20100601
  15. PREDSIM                            /05746301/ [Concomitant]
     Indication: RHEUMATOID ARTHRITIS
     Dosage: 2.5 MG, ALTERNATE DAY
     Route: 048
     Dates: start: 20060101

REACTIONS (1)
  - WEIGHT INCREASED [None]
